FAERS Safety Report 8722281 (Version 2)
Quarter: 2013Q4

REPORT INFORMATION
  Report Type: Spontaneous
  Country: GB (occurrence: GB)
  Receive Date: 20120814
  Receipt Date: 20131031
  Transmission Date: 20140711
  Serious: Yes (Life-Threatening)
  Sender: FDA-Public Use
  Company Number: GB-009507513-1208GBR004689

PATIENT
  Age: 42 Year
  Sex: Male

DRUGS (9)
  1. ZOCOR [Suspect]
     Indication: HYPERCHOLESTEROLAEMIA
     Route: 048
  2. EMTRICITABINE [Interacting]
     Indication: HIV INFECTION
  3. FOSAMPRENAVIR CALCIUM [Interacting]
     Indication: HIV INFECTION
  4. RITONAVIR [Interacting]
     Indication: HIV INFECTION
  5. TENOFOVIR [Interacting]
     Indication: HIV INFECTION
  6. ASPIRIN [Concomitant]
  7. CLOPIDOGREL [Concomitant]
  8. GLICLAZIDE [Concomitant]
     Indication: DIABETES MELLITUS
  9. PRAVASTATIN SODIUM [Concomitant]
     Indication: HYPERCHOLESTEROLAEMIA

REACTIONS (1)
  - Drug interaction [Recovered/Resolved]
